FAERS Safety Report 7542592-X (Version None)
Quarter: 2011Q2

REPORT INFORMATION
  Report Type: 
  Country: None (occurrence: None)
  Receive Date: 20110613
  Receipt Date: 20110608
  Transmission Date: 20111010
  Serious: No
  Sender: FDA-Public Use
  Company Number: BR-ROCHE-741354

PATIENT
  Sex: Male
  Weight: 3.5 kg

DRUGS (2)
  1. DIANE 35 [Concomitant]
     Indication: CONTRACEPTION
  2. ISOTRETINOIN [Suspect]
     Indication: ACNE
     Route: 064
     Dates: start: 20091101, end: 20100501

REACTIONS (2)
  - NORMAL NEWBORN [None]
  - NO ADVERSE EVENT [None]
